FAERS Safety Report 8602814-0 (Version None)
Quarter: 2012Q3

REPORT INFORMATION
  Report Type: 
  Country: None (occurrence: None)
  Receive Date: 20120817
  Receipt Date: 20120816
  Transmission Date: 20120928
  Serious: Yes (Other)
  Sender: FDA-Public Use
  Company Number: US-JNJFOC-20120404437

PATIENT

DRUGS (32)
  1. VINCRISTINE [Suspect]
     Dosage: 1.5 MG/M2/DOSE, MAX. 2 MG, BY PUSH ON DAYS 1, 8, 15 AND 22
     Route: 042
  2. DEXAMETHASONE [Suspect]
     Dosage: 10 MG/M2/DAY DIVIDED IN TO 2 DOSES FOR 24 CONSECUTIVE DAYS
     Route: 048
  3. CYTARABINE [Suspect]
     Dosage: ON DAY 1 FOR ALL PATIENTS AND ON DAYS 8, 15,22 FOR CNS INVLOVMENT
     Route: 037
  4. BORTEZOMIB [Suspect]
     Dosage: 1.3 MG/SQ.M/DOSE ON DAYS 1, 4, 8 AND 11 COMBINED WITH VXLD
     Route: 042
  5. VINCRISTINE [Suspect]
     Dosage: 1.5 MG/M2/DOSE, MAX. 2 MG, BY PUSH ON DAYS 1, 8, 15 AND 22
     Route: 042
  6. DEXAMETHASONE [Suspect]
     Indication: ACUTE LYMPHOCYTIC LEUKAEMIA
     Dosage: 10 MG/M2/DAY DIVIDED IN TO 2 DOSES FOR 24 CONSECUTIVE DAYS
     Route: 048
  7. ASPARAGINASE [Suspect]
     Dosage: 2500 UNITS/M2/DOSE AS 4 WEEKLY DOSES
     Route: 030
  8. METHOTREXATE [Suspect]
     Indication: ACUTE LYMPHOCYTIC LEUKAEMIA
     Dosage: 1 DOSE ON DAY 15 FOR NO CNS INVLOVEMENT AND ON DAYS 8, 15, 22 FOR CNS INVLOVEMENT
     Route: 037
  9. METHOTREXATE [Suspect]
     Dosage: 1 DOSE ON DAY 15 FOR NO CNS INVLOVEMENT AND ON DAYS 8, 15, 22 FOR CNS INVLOVEMENT
     Route: 037
  10. DOXORUBICIN HYDROCHLORIDE [Suspect]
     Dosage: GIVEN OVER 15-30 MINUTES ON DAY 1
     Route: 042
  11. CYTARABINE [Suspect]
     Dosage: ON DAY 1 FOR ALL PATIENTS AND ON DAYS 8, 15,22 FOR CNS INVLOVMENT
     Route: 037
  12. VINCRISTINE [Suspect]
     Dosage: 1.5 MG/M2/DOSE, MAX. 2 MG, BY PUSH ON DAYS 1, 8, 15 AND 22
     Route: 042
  13. CYTARABINE [Suspect]
     Indication: ACUTE LYMPHOCYTIC LEUKAEMIA
     Dosage: ON DAY 1 FOR ALL PATIENTS AND ON DAYS 8, 15,22 FOR CNS INVLOVMENT
     Route: 037
  14. METHOTREXATE [Suspect]
     Dosage: 1 DOSE ON DAY 15 FOR NO CNS INVLOVEMENT AND ON DAYS 8, 15, 22 FOR CNS INVLOVEMENT
     Route: 037
  15. HYDROCORTISONE [Suspect]
     Dosage: ON DAYS 8, 15 AND 22
     Route: 037
  16. BORTEZOMIB [Suspect]
     Dosage: 1.3 MG/SQ.M/DOSE ON DAYS 1, 4, 8 AND 11 COMBINED WITH VXLD
     Route: 042
  17. DOXORUBICIN HYDROCHLORIDE [Suspect]
     Dosage: GIVEN OVER 15-30 MINUTES ON DAY 1
     Route: 042
  18. ASPARAGINASE [Suspect]
     Dosage: 2500 UNITS/M2/DOSE AS 4 WEEKLY DOSES
     Route: 030
  19. HYDROCORTISONE [Suspect]
     Dosage: ON DAYS 8, 15 AND 22
     Route: 037
  20. HYDROCORTISONE [Suspect]
     Dosage: ON DAYS 8, 15 AND 22
     Route: 037
  21. DOXORUBICIN HYDROCHLORIDE [Suspect]
     Indication: ACUTE LYMPHOCYTIC LEUKAEMIA
     Dosage: GIVEN OVER 15-30 MINUTES ON DAY 1
     Route: 042
  22. BORTEZOMIB [Suspect]
     Dosage: 1.3 MG/SQ.M/DOSE ON DAYS 1, 4, 8 AND 11 COMBINED WITH VXLD
     Route: 042
  23. VINCRISTINE [Suspect]
     Indication: ACUTE LYMPHOCYTIC LEUKAEMIA
     Dosage: 1.5 MG/M2/DOSE, MAX. 2 MG, BY PUSH ON DAYS 1, 8, 15 AND 22
     Route: 042
  24. DEXAMETHASONE [Suspect]
     Dosage: 10 MG/M2/DAY DIVIDED IN TO 2 DOSES FOR 24 CONSECUTIVE DAYS
     Route: 048
  25. DEXAMETHASONE [Suspect]
     Dosage: 10 MG/M2/DAY DIVIDED IN TO 2 DOSES FOR 24 CONSECUTIVE DAYS
     Route: 048
  26. ASPARAGINASE [Suspect]
     Indication: ACUTE LYMPHOCYTIC LEUKAEMIA
     Dosage: 2500 UNITS/M2/DOSE AS 4 WEEKLY DOSES
     Route: 030
  27. DOXORUBICIN HYDROCHLORIDE [Suspect]
     Dosage: GIVEN OVER 15-30 MINUTES ON DAY 1
     Route: 042
  28. BORTEZOMIB [Suspect]
     Indication: ACUTE LYMPHOCYTIC LEUKAEMIA
     Dosage: 1.3 MG/SQ.M/DOSE ON DAYS 1, 4, 8 AND 11 COMBINED WITH VXLD
     Route: 042
  29. ASPARAGINASE [Suspect]
     Dosage: 2500 UNITS/M2/DOSE AS 4 WEEKLY DOSES
     Route: 030
  30. CYTARABINE [Suspect]
     Dosage: ON DAY 1 FOR ALL PATIENTS AND ON DAYS 8, 15,22 FOR CNS INVLOVMENT
     Route: 037
  31. METHOTREXATE [Suspect]
     Dosage: 1 DOSE ON DAY 15 FOR NO CNS INVLOVEMENT AND ON DAYS 8, 15, 22 FOR CNS INVLOVEMENT
     Route: 037
  32. HYDROCORTISONE [Suspect]
     Indication: ACUTE LYMPHOCYTIC LEUKAEMIA
     Dosage: ON DAYS 8, 15 AND 22
     Route: 037

REACTIONS (2)
  - OFF LABEL USE [None]
  - ZYGOMYCOSIS [None]
